FAERS Safety Report 17926051 (Version 55)
Quarter: 2025Q3

REPORT INFORMATION
  Report Type: Report from Study
  Country: US (occurrence: US)
  Receive Date: 20200623
  Receipt Date: 20250917
  Transmission Date: 20251020
  Serious: Yes (Hospitalization, Other)
  Sender: TAKEDA
  Company Number: US-SHIRE-US202020335

PATIENT
  Age: 31 Year
  Sex: Female
  Weight: 49 kg

DRUGS (62)
  1. HUMAN IMMUNOGLOBULIN G [Suspect]
     Active Substance: HUMAN IMMUNOGLOBULIN G
     Indication: Immunodeficiency common variable
     Dosage: 60 GRAM, Q4WEEKS
  2. HUMAN IMMUNOGLOBULIN G [Suspect]
     Active Substance: HUMAN IMMUNOGLOBULIN G
     Indication: Immunodeficiency
     Dosage: 35 GRAM, Q3WEEKS
     Dates: start: 20190822
  3. HUMAN IMMUNOGLOBULIN G [Suspect]
     Active Substance: HUMAN IMMUNOGLOBULIN G
     Indication: Hypogammaglobulinaemia
     Dosage: 35 GRAM, Q3WEEKS
  4. HUMAN IMMUNOGLOBULIN G [Suspect]
     Active Substance: HUMAN IMMUNOGLOBULIN G
     Dosage: 45 GRAM, Q3WEEKS
  5. HUMAN IMMUNOGLOBULIN G [Suspect]
     Active Substance: HUMAN IMMUNOGLOBULIN G
     Dosage: 60 GRAM, Q4WEEKS
  6. HUMAN IMMUNOGLOBULIN G [Suspect]
     Active Substance: HUMAN IMMUNOGLOBULIN G
     Dosage: UNK UNK, Q4WEEKS
     Dates: start: 202310
  7. HUMAN IMMUNOGLOBULIN G [Suspect]
     Active Substance: HUMAN IMMUNOGLOBULIN G
     Dosage: 60 GRAM, Q4WEEKS
  8. ADDERALL [Concomitant]
     Active Substance: AMPHETAMINE ASPARTATE\AMPHETAMINE SULFATE\DEXTROAMPHETAMINE SACCHARATE\DEXTROAMPHETAMINE SULFATE
  9. ACETAMINOPHEN [Concomitant]
     Active Substance: ACETAMINOPHEN
  10. DIPHENHYDRAMINE [Concomitant]
     Active Substance: DIPHENHYDRAMINE
  11. SODIUM CHLORIDE [Concomitant]
     Active Substance: SODIUM CHLORIDE
  12. ONDANSETRON [Concomitant]
     Active Substance: ONDANSETRON
  13. EPINEPHRINE [Concomitant]
     Active Substance: EPINEPHRINE
  14. Lmx [Concomitant]
  15. AMITRIPTYLINE [Concomitant]
     Active Substance: AMITRIPTYLINE
  16. MELATONIN [Concomitant]
     Active Substance: MELATONIN
  17. SUDAFED [Concomitant]
     Active Substance: PSEUDOEPHEDRINE HYDROCHLORIDE
  18. DEMANNOSE [Concomitant]
     Active Substance: DEMANNOSE
  19. CLONAZEPAM [Concomitant]
     Active Substance: CLONAZEPAM
  20. VALACYCLOVIR [Concomitant]
     Active Substance: VALACYCLOVIR HYDROCHLORIDE
  21. APPLE CIDER VINEGAR [Concomitant]
     Active Substance: APPLE CIDER VINEGAR
  22. BUSPIRONE [Concomitant]
     Active Substance: BUSPIRONE HYDROCHLORIDE
  23. UNISOM SLEEPTABS [Concomitant]
     Active Substance: DOXYLAMINE SUCCINATE
  24. SODIUM CHLORIDE [Concomitant]
     Active Substance: SODIUM CHLORIDE
  25. HERBALS [Concomitant]
     Active Substance: HERBALS
  26. DULOXETINE [Concomitant]
     Active Substance: DULOXETINE
  27. LIDOCAINE [Concomitant]
     Active Substance: LIDOCAINE
  28. IRON [Concomitant]
     Active Substance: IRON
  29. VITAMIN D3 [Concomitant]
     Active Substance: CHOLECALCIFEROL
  30. OMEPRAZOLE [Concomitant]
     Active Substance: OMEPRAZOLE
  31. ELINEST [Concomitant]
     Active Substance: ETHINYL ESTRADIOL\NORGESTREL
  32. CYANOCOBALAMIN [Concomitant]
     Active Substance: CYANOCOBALAMIN
  33. DEXTROAMPHETAMINE SACCHARATE, AMPHETAMINE ASPARTATE, DEXTROAMPHETAMINE [Concomitant]
     Active Substance: AMPHETAMINE ASPARTATE\AMPHETAMINE SULFATE\DEXTROAMPHETAMINE SACCHARATE\DEXTROAMPHETAMINE SULFATE
  34. CITALOPRAM HYDROBROMIDE [Concomitant]
     Active Substance: CITALOPRAM HYDROBROMIDE
  35. DOXYCYCLINE HYCLATE [Concomitant]
     Active Substance: DOXYCYCLINE HYCLATE
  36. CRYSELLE [Concomitant]
     Active Substance: ETHINYL ESTRADIOL\NORGESTREL
  37. FLUOXETINE HYDROCHLORIDE [Concomitant]
     Active Substance: FLUOXETINE HYDROCHLORIDE
  38. IRON [Concomitant]
     Active Substance: IRON
  39. HYDROXYCHLOROQUINE SULFATE [Concomitant]
     Active Substance: HYDROXYCHLOROQUINE SULFATE
  40. NIFEDIPINE [Concomitant]
     Active Substance: NIFEDIPINE
  41. AMOXICILLIN [Concomitant]
     Active Substance: AMOXICILLIN
  42. AMOXICILLIN\CLAVULANATE POTASSIUM [Concomitant]
     Active Substance: AMOXICILLIN\CLAVULANATE POTASSIUM
  43. SULFAMETHOXAZOLE AND TRIMETHOPRIM [Concomitant]
     Active Substance: SULFAMETHOXAZOLE\TRIMETHOPRIM
  44. MINOXIDIL [Concomitant]
     Active Substance: MINOXIDIL
  45. HYDROXYZINE HYDROCHLORIDE [Concomitant]
     Active Substance: HYDROXYZINE HYDROCHLORIDE
  46. LORATADINE [Concomitant]
     Active Substance: LORATADINE
  47. FLUCONAZOLE [Concomitant]
     Active Substance: FLUCONAZOLE
  48. DIPHENHYDRAMINE HYDROCHLORIDE [Concomitant]
     Active Substance: DIPHENHYDRAMINE HYDROCHLORIDE
  49. FERROUS SULFATE [Concomitant]
     Active Substance: FERROUS SULFATE
  50. DOXYCYCLINE [Concomitant]
     Active Substance: DOXYCYCLINE
  51. CITALOPRAM [Concomitant]
     Active Substance: CITALOPRAM
  52. B12 [Concomitant]
  53. HYDROXYZINE [Concomitant]
     Active Substance: HYDROXYZINE HYDROCHLORIDE
  54. HYDROXYCHLOROQUINE [Concomitant]
     Active Substance: HYDROXYCHLOROQUINE
  55. PROPRANOLOL [Concomitant]
     Active Substance: PROPRANOLOL HYDROCHLORIDE
  56. MAGNESIUM [Concomitant]
     Active Substance: MAGNESIUM
  57. PROGESTERONE [Concomitant]
     Active Substance: PROGESTERONE
  58. PROPRANOLOL HYDROCHLORIDE [Concomitant]
     Active Substance: PROPRANOLOL HYDROCHLORIDE
  59. VALACYCLOVIR HYDROCHLORIDE [Concomitant]
     Active Substance: VALACYCLOVIR HYDROCHLORIDE
  60. CELECOXIB [Concomitant]
     Active Substance: CELECOXIB
  61. IBUPROFEN [Concomitant]
     Active Substance: IBUPROFEN
  62. ARIPIPRAZOLE [Concomitant]
     Active Substance: ARIPIPRAZOLE

REACTIONS (39)
  - Uterine infection [Unknown]
  - Mastitis [Unknown]
  - Systemic lupus erythematosus [Unknown]
  - COVID-19 pneumonia [Recovered/Resolved]
  - Pneumonia [Unknown]
  - Oral herpes [Recovered/Resolved]
  - Folliculitis [Unknown]
  - Vulvovaginal mycotic infection [Recovered/Resolved]
  - Productive cough [Unknown]
  - Paranasal sinus discomfort [Unknown]
  - Pharyngitis streptococcal [Recovered/Resolved]
  - Fungal infection [Unknown]
  - Skin infection [Recovered/Resolved]
  - Urinary tract infection [Unknown]
  - Tenderness [Recovered/Resolved]
  - Exposure during pregnancy [Recovered/Resolved]
  - Illness [Unknown]
  - Suspected COVID-19 [Unknown]
  - Insurance issue [Unknown]
  - Inappropriate schedule of product administration [Unknown]
  - Arthritis [Unknown]
  - Respiratory tract infection [Unknown]
  - Upper respiratory tract infection [Unknown]
  - Sinusitis [Recovered/Resolved]
  - Influenza [Recovered/Resolved]
  - Nasal congestion [Recovered/Resolved]
  - Rhinorrhoea [Unknown]
  - Lymphadenopathy [Unknown]
  - Pain [Recovered/Resolved]
  - Anxiety [Unknown]
  - Rash [Unknown]
  - Cough [Unknown]
  - Malaise [Unknown]
  - Erythema [Recovered/Resolved]
  - Back pain [Unknown]
  - Pruritus [Recovered/Resolved]
  - Headache [Recovered/Resolved]
  - Fatigue [Recovered/Resolved]
  - Nausea [Unknown]

NARRATIVE: CASE EVENT DATE: 20201024
